FAERS Safety Report 17942249 (Version 2)
Quarter: 2020Q2

REPORT INFORMATION
  Report Type: Spontaneous
  Country: FR (occurrence: FR)
  Receive Date: 20200624
  Receipt Date: 20200627
  Transmission Date: 20200714
  Serious: Yes (Death, Hospitalization, Other)
  Sender: FDA-Public Use
  Company Number: NVSC2020FR173149

PATIENT
  Age: 62 Year
  Sex: Male
  Weight: 48 kg

DRUGS (4)
  1. TRAMETINIB [Suspect]
     Active Substance: TRAMETINIB
     Indication: BRAF GENE MUTATION
  2. TRAMETINIB [Suspect]
     Active Substance: TRAMETINIB
     Indication: THYROID CANCER
     Dosage: 1.5 MG
     Route: 048
     Dates: start: 20200330, end: 20200616
  3. DABRAFENIB [Suspect]
     Active Substance: DABRAFENIB
     Indication: THYROID CANCER
     Dosage: 150 MG, BID
     Route: 048
     Dates: start: 20200330, end: 20200616
  4. DABRAFENIB [Suspect]
     Active Substance: DABRAFENIB
     Indication: BRAF GENE MUTATION

REACTIONS (3)
  - SARS-CoV-2 test positive [Unknown]
  - Cardiac arrest [Fatal]
  - Neutropenia [Unknown]

NARRATIVE: CASE EVENT DATE: 20200616
